FAERS Safety Report 5194500-7 (Version None)
Quarter: 2006Q4

REPORT INFORMATION
  Report Type: 
  Country: None (occurrence: None)
  Receive Date: 20061226
  Receipt Date: 20061215
  Transmission Date: 20070319
  Serious: Yes (Hospitalization)
  Sender: FDA-Public Use
  Company Number: S06-FRA-05153-01

PATIENT
  Age: 48 Year
  Sex: Male

DRUGS (5)
  1. SEROPLEX (ESCITALOPRAM) [Suspect]
     Indication: DEPRESSION
     Dosage: 15 MG QD PO
     Route: 048
  2. TERCIAN (CYAMEMAZINE) [Suspect]
     Indication: DEPRESSION
     Dosage: 10 MG TID PO
     Route: 048
  3. NORVIR [Suspect]
     Indication: HIV INFECTION
     Dosage: 100 MG BID PO
     Route: 048
     Dates: start: 20051227
  4. TELZIR [Suspect]
     Indication: HIV INFECTION
     Dosage: 700 MG BID PO
     Route: 048
     Dates: start: 20051227
  5. KIVEXA [Suspect]
     Indication: HIV INFECTION
     Dosage: 1 QD PO
     Route: 048
     Dates: start: 20051227

REACTIONS (13)
  - ANEURYSM [None]
  - ATRIAL SEPTAL DEFECT [None]
  - COORDINATION ABNORMAL [None]
  - CSF LACTATE INCREASED [None]
  - FACIAL PALSY [None]
  - GAIT DISTURBANCE [None]
  - HYPERTRIGLYCERIDAEMIA [None]
  - HYPOTENSION [None]
  - LOSS OF CONSCIOUSNESS [None]
  - MALAISE [None]
  - NEUROGENIC BLADDER [None]
  - NUCLEAR MAGNETIC RESONANCE IMAGING BRAIN ABNORMAL [None]
  - PYRAMIDAL TRACT SYNDROME [None]
